FAERS Safety Report 20175610 (Version 1)
Quarter: 2021Q4

REPORT INFORMATION
  Report Type: Spontaneous
  Country: US (occurrence: None)
  Receive Date: 20211209
  Receipt Date: 20211209
  Transmission Date: 20220303
  Serious: No
  Sender: FDA-Public Use
  Company Number: None

PATIENT
  Age: 72 Year
  Sex: Male

DRUGS (1)
  1. JAKAFI [Suspect]
     Active Substance: RUXOLITINIB
     Indication: Polycythaemia vera
     Dosage: FREQUENCY : TWICE A DAY;?
     Route: 048
     Dates: start: 20210624

REACTIONS (6)
  - Increased appetite [None]
  - Somnolence [None]
  - Somnolence [None]
  - Neuralgia [None]
  - Skin neoplasm excision [None]
  - Incision site impaired healing [None]

NARRATIVE: CASE EVENT DATE: 20211209
